FAERS Safety Report 12754886 (Version 1)
Quarter: 2016Q3

REPORT INFORMATION
  Report Type: Spontaneous
  Country: DE (occurrence: DE)
  Receive Date: 20160916
  Receipt Date: 20160916
  Transmission Date: 20161109
  Serious: Yes (Other)
  Sender: FDA-Public Use
  Company Number: DE-MYLANLABS-2016M1039019

PATIENT

DRUGS (1)
  1. AMITRIPTYLIN-DURA 25 MG [Suspect]
     Active Substance: AMITRIPTYLINE HYDROCHLORIDE
     Indication: PRODUCT USED FOR UNKNOWN INDICATION
     Dosage: 80 DF, UNK
     Route: 048

REACTIONS (8)
  - Hyperhidrosis [Unknown]
  - Tachycardia [Unknown]
  - Hypoaesthesia [Unknown]
  - Agitation [Unknown]
  - Restlessness [Unknown]
  - Intellectual disability [Unknown]
  - Suicide attempt [Unknown]
  - Intentional overdose [Unknown]
